FAERS Safety Report 7761709-5 (Version None)
Quarter: 2011Q3

REPORT INFORMATION
  Report Type: 
  Country: None (occurrence: None)
  Receive Date: 20110915
  Receipt Date: 20110912
  Transmission Date: 20111222
  Serious: Yes (Hospitalization)
  Sender: FDA-Public Use
  Company Number: CO-001963

PATIENT
  Age: 8 Year
  Sex: Female

DRUGS (1)
  1. NAGLAZYME [Suspect]
     Indication: MUCOPOLYSACCHARIDOSIS VI
     Dosage: (15 MG/KG 1X/WEEK INTRAVENOUS DRIP)
     Route: 041
     Dates: start: 20110527

REACTIONS (6)
  - PNEUMONIA BACTERIAL [None]
  - STAPHYLOCOCCAL INFECTION [None]
  - RESPIRATORY DISTRESS [None]
  - CENTRAL NERVOUS SYSTEM INFECTION [None]
  - RESPIRATORY FAILURE [None]
  - CARDIAC FAILURE [None]
